FAERS Safety Report 5934985-9 (Version None)
Quarter: 2008Q4

REPORT INFORMATION
  Report Type: 
  Country: None (occurrence: None)
  Receive Date: 20081029
  Receipt Date: 20081029
  Transmission Date: 20090506
  Serious: Yes (Hospitalization)
  Sender: FDA-Public Use
  Company Number: None

PATIENT
  Sex: Male

DRUGS (1)
  1. LORAZEPAM [Suspect]
     Indication: CONVULSION
     Dosage: 1 ML ONCE IM
     Route: 030

REACTIONS (2)
  - DEVICE INEFFECTIVE [None]
  - MEDICATION ERROR [None]
